FAERS Safety Report 10458078 (Version 4)
Quarter: 2017Q4

REPORT INFORMATION
  Report Type: Report from Study
  Country: JP (occurrence: JP)
  Receive Date: 20140917
  Receipt Date: 20171026
  Transmission Date: 20180320
  Serious: Yes (Hospitalization, Other)
  Sender: FDA-Public Use
  Company Number: JP-ROCHE-1457112

PATIENT
  Age: 56 Year
  Sex: Female
  Weight: 58 kg

DRUGS (10)
  1. CELECOX [Concomitant]
     Active Substance: CELECOXIB
     Route: 048
     Dates: start: 20131213
  2. BEVACIZUMAB. [Suspect]
     Active Substance: BEVACIZUMAB
     Indication: BREAST CANCER METASTATIC
     Route: 041
     Dates: start: 20140515
  3. SHAKUYAKUKANZOTO [Concomitant]
     Active Substance: HERBALS
     Route: 048
     Dates: start: 20140716
  4. MS CONTIN [Concomitant]
     Active Substance: MORPHINE SULFATE
     Route: 048
     Dates: start: 20140507
  5. MAGMITT [Concomitant]
     Active Substance: MAGNESIUM OXIDE
     Route: 048
     Dates: start: 20140326
  6. PACLITAXEL. [Suspect]
     Active Substance: PACLITAXEL
     Indication: BREAST CANCER METASTATIC
     Dosage: DOSAGE IS UNCERTAIN.
     Route: 041
     Dates: start: 20140515
  7. DEPAKENE [Concomitant]
     Active Substance: VALPROIC ACID
     Route: 048
     Dates: start: 20140514
  8. LYRICA [Concomitant]
     Active Substance: PREGABALIN
     Route: 048
     Dates: start: 20140326
  9. LENDORMIN [Concomitant]
     Active Substance: BROTIZOLAM
     Route: 048
     Dates: start: 20140411
  10. RINDERON V [Concomitant]
     Active Substance: BETAMETHASONE VALERATE
     Route: 048
     Dates: start: 20140522

REACTIONS (6)
  - Neuropathy peripheral [Not Recovered/Not Resolved]
  - Neutrophil count decreased [Recovering/Resolving]
  - Hypertension [Not Recovered/Not Resolved]
  - Enteritis infectious [Recovered/Resolved]
  - Proteinuria [Not Recovered/Not Resolved]
  - Drug-induced liver injury [Unknown]

NARRATIVE: CASE EVENT DATE: 20140517
